FAERS Safety Report 14189357 (Version 2)
Quarter: 2017Q4

REPORT INFORMATION
  Report Type: Spontaneous
  Country: US (occurrence: US)
  Receive Date: 20171115
  Receipt Date: 20171124
  Transmission Date: 20180321
  Serious: No
  Sender: FDA-Public Use
  Company Number: US-CELGENEUS-USA-20171102837

PATIENT
  Sex: Female

DRUGS (2)
  1. OTEZLA [Suspect]
     Active Substance: APREMILAST
     Route: 048
     Dates: start: 2017
  2. OTEZLA [Suspect]
     Active Substance: APREMILAST
     Indication: PSORIASIS
     Dosage: 60 MILLIGRAM
     Route: 048
     Dates: start: 20170703

REACTIONS (8)
  - Abdominal discomfort [Unknown]
  - Fatigue [Unknown]
  - Withdrawal syndrome [Unknown]
  - Headache [Unknown]
  - Drug dose omission [Unknown]
  - Psoriasis [Unknown]
  - Pruritus [Unknown]
  - Arthritis [Unknown]

NARRATIVE: CASE EVENT DATE: 2017
